FAERS Safety Report 11495546 (Version 1)
Quarter: 2015Q3

REPORT INFORMATION
  Report Type: Spontaneous
  Country: US (occurrence: US)
  Receive Date: 20150911
  Receipt Date: 20150911
  Transmission Date: 20151125
  Serious: No
  Sender: FDA-Public Use
  Company Number: US-ROCHE-1011556

PATIENT
  Sex: Female
  Weight: 109.87 kg

DRUGS (2)
  1. PEGASYS [Suspect]
     Active Substance: PEGINTERFERON ALFA-2A
     Indication: HEPATITIS C
     Route: 058
     Dates: start: 20111005
  2. RIBAVIRIN. [Concomitant]
     Active Substance: RIBAVIRIN
     Indication: HEPATITIS C
     Route: 048
     Dates: start: 20111005

REACTIONS (9)
  - Memory impairment [Not Recovered/Not Resolved]
  - Mouth swelling [Unknown]
  - Initial insomnia [Not Recovered/Not Resolved]
  - Weight decreased [Unknown]
  - Renal disorder [Unknown]
  - Tachyphrenia [Unknown]
  - Dry mouth [Unknown]
  - Blood sodium decreased [Unknown]
  - Dysgeusia [Unknown]
